FAERS Safety Report 5231663-9 (Version None)
Quarter: 2007Q1

REPORT INFORMATION
  Report Type: 
  Country: None (occurrence: None)
  Receive Date: 20070202
  Receipt Date: 20070117
  Transmission Date: 20070707
  Serious: Yes (Hospitalization)
  Sender: FDA-Public Use
  Company Number: 232128

PATIENT
  Age: 65 Year
  Sex: Female
  Weight: 73.4 kg

DRUGS (8)
  1. AVASTIN [Suspect]
     Indication: NON-SMALL CELL LUNG CANCER
     Dosage: 15 MG/KG, INTRAVENOUS
     Route: 042
     Dates: start: 20060609
  2. CARBOPLATIN [Suspect]
     Indication: NON-SMALL CELL LUNG CANCER
     Dosage: 6 AUC
     Dates: start: 20060609, end: 20060811
  3. ALIMTA [Suspect]
     Indication: NON-SMALL CELL LUNG CANCER
     Dosage: 15 MG/KG, INTRAVENOUS
     Route: 042
     Dates: start: 20060609, end: 20060811
  4. LASIX [Concomitant]
  5. XANAX [Concomitant]
  6. PRILOSEC [Concomitant]
  7. LORAZEPAM [Concomitant]
  8. METOCLOPRAMIDE HCL (METOCLOPRAMIDE HYDROCHLORIDE) [Concomitant]

REACTIONS (5)
  - CARDIOMYOPATHY [None]
  - CHEST PAIN [None]
  - ELECTROCARDIOGRAM T WAVE INVERSION [None]
  - PROCEDURAL PAIN [None]
  - SINUS TACHYCARDIA [None]
